FAERS Safety Report 8445418-5 (Version None)
Quarter: 2012Q2

REPORT INFORMATION
  Report Type: 
  Country: None (occurrence: None)
  Receive Date: 20120611
  Receipt Date: 20120530
  Transmission Date: 20120825
  Serious: Yes (Hospitalization)
  Sender: FDA-Public Use
  Company Number: FR-008529

PATIENT
  Age: 54 Year
  Sex: Female
  Weight: 96 kg

DRUGS (19)
  1. AZINC [Concomitant]
  2. FERROUS FUMARATE [Concomitant]
  3. LEXOMIL [Concomitant]
  4. ATORVASTATIN [Concomitant]
  5. KEPPRA [Concomitant]
  6. LEVOTHYROXINE SODIUM [Concomitant]
  7. XENICAL [Concomitant]
  8. SOMATROPIN RDNA [Suspect]
     Indication: HYPOPITUITARISM
     Dosage: (0.3 MG, 7 INJECTIONS PER WEEK SUBCUTANEOUS)
     Route: 058
     Dates: start: 20051207
  9. GLUCOPHAGE [Concomitant]
  10. DIAMICRON [Concomitant]
  11. PENTOXIFYLLINE [Concomitant]
  12. MINIRIN [Suspect]
     Indication: DIABETES INSIPIDUS
     Dosage: (ORAL)
     Route: 048
     Dates: start: 20051207
  13. INSULIN GLARGINE [Concomitant]
  14. OXAZEPAM [Concomitant]
  15. PROGESTERONE [Concomitant]
  16. DAFLON [Concomitant]
  17. HYDROCOTISONE [Concomitant]
  18. OESCLIM [Concomitant]
  19. OMEPRAZOLE [Concomitant]

REACTIONS (7)
  - PALPITATIONS [None]
  - OVERDOSE [None]
  - HYPONATRAEMIA [None]
  - CHEST PAIN [None]
  - ADRENAL DISORDER [None]
  - ATRIAL FIBRILLATION [None]
  - REFUSAL OF TREATMENT BY PATIENT [None]
